FAERS Safety Report 25051887 (Version 1)
Quarter: 2025Q1

REPORT INFORMATION
  Report Type: Spontaneous
  Country: JP (occurrence: JP)
  Receive Date: 20250307
  Receipt Date: 20250307
  Transmission Date: 20250408
  Serious: Yes (Other)
  Sender: Visiox
  Company Number: JP-SANTEN-2025-AER-00077

PATIENT
  Age: 64 Year
  Sex: Female

DRUGS (2)
  1. OMIDENEPAG ISOPROPYL [Suspect]
     Active Substance: OMIDENEPAG ISOPROPYL
     Indication: Glaucoma
     Dosage: ONCE A DAY (1 IN 1 D)
     Route: 047
     Dates: start: 20221104, end: 20250220
  2. OMIDENEPAG ISOPROPYL [Suspect]
     Active Substance: OMIDENEPAG ISOPROPYL
     Indication: Prostaglandin analogue periorbitopathy

REACTIONS (4)
  - Cataract [Unknown]
  - Cataract [Unknown]
  - Cystoid macular oedema [Recovering/Resolving]
  - Contraindicated product administered [Unknown]

NARRATIVE: CASE EVENT DATE: 20241105
